FAERS Safety Report 14699824 (Version 1)
Quarter: 2018Q1

REPORT INFORMATION
  Report Type: Spontaneous
  Country: US (occurrence: US)
  Receive Date: 20180329
  Receipt Date: 20180329
  Transmission Date: 20180509
  Serious: Yes (Other)
  Sender: FDA-Public Use
  Company Number: None

PATIENT
  Age: 82 Year
  Sex: Female
  Weight: 72 kg

DRUGS (7)
  1. AMARYL [Concomitant]
     Active Substance: GLIMEPIRIDE
  2. OSCAL [Concomitant]
     Active Substance: CALCIUM CARBONATE
  3. PRAVASTATIN. [Concomitant]
     Active Substance: PRAVASTATIN
  4. LASIX [Concomitant]
     Active Substance: FUROSEMIDE
  5. ALLEGRA [Concomitant]
     Active Substance: FEXOFENADINE HYDROCHLORIDE
  6. ACTOS [Suspect]
     Active Substance: PIOGLITAZONE HYDROCHLORIDE
     Indication: BLOOD GLUCOSE INCREASED
     Dosage: ?          QUANTITY:1 TABLET(S);?
     Route: 048
     Dates: start: 20180315, end: 20180317
  7. PRINIVIL [Concomitant]
     Active Substance: LISINOPRIL

REACTIONS (3)
  - Joint swelling [None]
  - Oedema [None]
  - Peripheral swelling [None]

NARRATIVE: CASE EVENT DATE: 20180315
